FAERS Safety Report 23817612 (Version 5)
Quarter: 2024Q3

REPORT INFORMATION
  Report Type: Spontaneous
  Country: IT (occurrence: IT)
  Receive Date: 20240505
  Receipt Date: 20240725
  Transmission Date: 20241017
  Serious: Yes (Other)
  Sender: SANDOZ
  Company Number: IT-BRISTOL-MYERS SQUIBB COMPANY-2024-046956

PATIENT
  Age: 66 Year
  Sex: Female
  Weight: 48 kg

DRUGS (8)
  1. CARBOPLATIN [Suspect]
     Active Substance: CARBOPLATIN
     Indication: Non-small cell lung cancer
     Dosage: UNK
     Route: 065
     Dates: start: 20240124, end: 20240216
  2. IPILIMUMAB [Suspect]
     Active Substance: IPILIMUMAB
     Indication: Non-small cell lung cancer
     Dosage: 50 MG
     Route: 042
     Dates: start: 20240124
  3. NIVOLUMAB [Suspect]
     Active Substance: NIVOLUMAB
     Indication: Non-small cell lung cancer
     Dosage: 360 MG, TIW
     Route: 042
     Dates: start: 20240124
  4. PEMETREXED [Suspect]
     Active Substance: PEMETREXED
     Indication: Non-small cell lung cancer
     Dosage: 580 MG
     Route: 065
     Dates: start: 20240124, end: 20240216
  5. BISOPROLOL FUMARATE [Concomitant]
     Active Substance: BISOPROLOL FUMARATE
     Indication: Hypertension
     Dosage: THERAPY START DATE: 01-JAN-1900
     Route: 048
  6. Dobetin [Concomitant]
     Indication: Product used for unknown indication
     Dosage: INIET 5F 1000MCG 1 MLTHERAPY START DATE: 01-JAN-1900
     Route: 030
     Dates: end: 20240109
  7. Folina [Concomitant]
     Indication: Product used for unknown indication
     Dosage: 1 DIE
     Route: 048
     Dates: start: 20240101
  8. BROTIZOLAM [Concomitant]
     Active Substance: BROTIZOLAM
     Indication: Product used for unknown indication
     Dosage: 30 CPR1 DIETHERAPY START DATE: 01-JAN-1900
     Route: 048
     Dates: start: 19000101, end: 20240227

REACTIONS (10)
  - Hyperthyroidism [Recovered/Resolved]
  - Hypothyroidism [Recovering/Resolving]
  - Productive cough [Recovered/Resolved]
  - Hypomagnesaemia [Recovered/Resolved]
  - Back pain [Recovered/Resolved]
  - Periorbital oedema [Recovered/Resolved]
  - Mucosal inflammation [Recovered/Resolved]
  - Pain [Recovered/Resolved]
  - Oedema peripheral [Recovered/Resolved]
  - Prescribed overdose [Unknown]

NARRATIVE: CASE EVENT DATE: 20240304
